FAERS Safety Report 21232618 (Version 2)
Quarter: 2022Q3

REPORT INFORMATION
  Report Type: Report from Study
  Country: US (occurrence: US)
  Receive Date: 20220819
  Receipt Date: 20220923
  Transmission Date: 20221026
  Serious: Yes (Death, Hospitalization)
  Sender: FDA-Public Use
  Company Number: US-BAYER-2022A109582

PATIENT
  Age: 77 Year
  Sex: Male

DRUGS (2)
  1. NEXAVAR [Suspect]
     Active Substance: SORAFENIB
     Indication: Hepatic cancer metastatic
     Dosage: UNK
     Route: 048
     Dates: start: 20220618, end: 202206
  2. NEXAVAR [Suspect]
     Active Substance: SORAFENIB
     Indication: Hepatic cancer metastatic
     Dosage: UNK
     Dates: start: 202206

REACTIONS (2)
  - Hepatic cancer [Fatal]
  - Hospitalisation [None]

NARRATIVE: CASE EVENT DATE: 20220601
